FAERS Safety Report 8032914 (Version 3)
Quarter: 2013Q1

REPORT INFORMATION
  Report Type: Spontaneous
  Country: US (occurrence: US)
  Receive Date: 20110713
  Receipt Date: 20130214
  Transmission Date: 20140127
  Serious: Yes (Life-Threatening, Hospitalization)
  Sender: FDA-Public Use
  Company Number: US-BAYER-2011-059288

PATIENT
  Age: 28 Year
  Sex: Female
  Weight: 53.52 kg

DRUGS (7)
  1. YASMIN [Suspect]
     Indication: CONTRACEPTION
     Dosage: UNK
     Dates: start: 20070109, end: 20090731
  2. YASMIN [Suspect]
     Indication: CONTRACEPTION
     Dosage: UNK
     Dates: start: 20090803
  3. IBUPROFEN [Concomitant]
     Indication: PAIN
     Dosage: 800 MG, TID
     Route: 048
     Dates: start: 20090713, end: 20090816
  4. LIDOCAINE [Concomitant]
     Dosage: 4 ML, UNK
     Route: 058
     Dates: start: 20090723
  5. KENALOG [Concomitant]
     Dosage: 40MG/1ML
     Dates: start: 20090723
  6. AMOXICILLIN [Concomitant]
     Dosage: UNK
     Dates: start: 20080126, end: 20090723
  7. TRIMETOPRIM-SULFA [Concomitant]
     Dosage: UNK
     Dates: start: 20080421, end: 20090723

REACTIONS (6)
  - Deep vein thrombosis [Unknown]
  - Injury [None]
  - Emotional distress [None]
  - General physical health deterioration [None]
  - Anxiety [None]
  - Anhedonia [None]
